FAERS Safety Report 10675382 (Version 2)
Quarter: 2015Q1

REPORT INFORMATION
  Report Type: Spontaneous
  Country: IT (occurrence: IT)
  Receive Date: 20141224
  Receipt Date: 20150304
  Transmission Date: 20150720
  Serious: Yes (Other)
  Sender: FDA-Public Use
  Company Number: IT-PFIZER INC-2014356647

PATIENT
  Age: 8 Month
  Sex: Female

DRUGS (1)
  1. ORELOX [Suspect]
     Active Substance: CEFPODOXIME
     Indication: BRONCHOPNEUMONIA
     Dosage: 4 ML, DAILY
     Route: 048
     Dates: start: 20141118, end: 20141120

REACTIONS (1)
  - Hypersensitivity vasculitis [Recovered/Resolved]

NARRATIVE: CASE EVENT DATE: 20141120
